FAERS Safety Report 16593779 (Version 2)
Quarter: 2019Q3

REPORT INFORMATION
  Report Type: Spontaneous
  Country: US (occurrence: US)
  Receive Date: 20190718
  Receipt Date: 20190925
  Transmission Date: 20191004
  Serious: No
  Sender: FDA-Public Use
  Company Number: US-B.I. PHARMACEUTICALS,INC./RIDGEFIELD-2019-US-000628

PATIENT
  Age: 64 Year
  Sex: Male

DRUGS (1)
  1. SPIRIVA RESPIMAT [Suspect]
     Active Substance: TIOTROPIUM BROMIDE
     Indication: CHRONIC OBSTRUCTIVE PULMONARY DISEASE
     Dosage: 2 INHALATIONS 1 TIME DAILY
     Route: 065
     Dates: start: 201906

REACTIONS (2)
  - Extra dose administered [Recovered/Resolved]
  - Dose calculation error [Unknown]

NARRATIVE: CASE EVENT DATE: 201906
